FAERS Safety Report 23884650 (Version 2)
Quarter: 2024Q3

REPORT INFORMATION
  Report Type: Spontaneous
  Country: FR (occurrence: FR)
  Receive Date: 20240522
  Receipt Date: 20240701
  Transmission Date: 20241017
  Serious: Yes (Hospitalization, Other)
  Sender: PFIZER
  Company Number: FR-Accord-424049

PATIENT
  Age: 55 Year
  Sex: Female
  Weight: 76.5 kg

DRUGS (12)
  1. GEMCITABINE HYDROCHLORIDE [Suspect]
     Active Substance: GEMCITABINE HYDROCHLORIDE
     Indication: Adenocarcinoma pancreas
     Dosage: (1840 MG), CYCLIC (D1,D8,D15)
     Dates: start: 20240116, end: 202401
  2. GEMCITABINE HYDROCHLORIDE [Suspect]
     Active Substance: GEMCITABINE HYDROCHLORIDE
     Dosage: (1840 MG), CYCLIC (D1,D8,D15)
     Dates: start: 202401, end: 2024
  3. ABRAXANE [Suspect]
     Active Substance: PACLITAXEL
     Indication: Adenocarcinoma pancreas
     Dosage: (230 MG), CYCLIC (D1,D8,D15)
     Dates: start: 20240116, end: 202401
  4. ABRAXANE [Suspect]
     Active Substance: PACLITAXEL
     Dosage: (230 MG), CYCLIC (D1,D8,D15)
     Dates: start: 202401, end: 2024
  5. CHLORPROMAZINE [Concomitant]
     Active Substance: CHLORPROMAZINE
  6. INNOHEP [Concomitant]
     Active Substance: TINZAPARIN SODIUM
     Dates: start: 202401
  7. ONDANSETRON [Concomitant]
     Active Substance: ONDANSETRON
     Dates: start: 20240116, end: 20240125
  8. EMEND [Concomitant]
     Active Substance: APREPITANT
  9. TINZAPARIN SODIUM [Concomitant]
     Active Substance: TINZAPARIN SODIUM
     Dates: start: 20240116, end: 20240123
  10. OXYCONTIN [Concomitant]
     Active Substance: OXYCODONE HYDROCHLORIDE
     Dosage: UNK
  11. OXYCODONE HYDROCHLORIDE [Concomitant]
     Active Substance: OXYCODONE HYDROCHLORIDE
     Dosage: FORMULATION
     Dates: start: 20240116
  12. OXYCODONE HYDROCHLORIDE [Concomitant]
     Active Substance: OXYCODONE HYDROCHLORIDE
     Dosage: UNK

REACTIONS (23)
  - Vomiting [Recovered/Resolved]
  - Asthenia [Recovered/Resolved]
  - Hepatic cytolysis [Unknown]
  - Hyponatraemia [Recovered/Resolved]
  - Alanine aminotransferase increased [Recovered/Resolved]
  - Aspartate aminotransferase increased [Recovered/Resolved]
  - Deep vein thrombosis [Unknown]
  - Blood alkaline phosphatase increased [Unknown]
  - Blood bilirubin increased [Unknown]
  - Blood creatinine increased [Unknown]
  - Blood pressure increased [Unknown]
  - Blood urea increased [Unknown]
  - Body mass index increased [Unknown]
  - C-reactive protein increased [Unknown]
  - Glomerular filtration rate decreased [Unknown]
  - Haemoglobin increased [Unknown]
  - Heart rate increased [Unknown]
  - Neutrophil count increased [Unknown]
  - Procalcitonin increased [Unknown]
  - Prothrombin time shortened [Unknown]
  - Weight decreased [Unknown]
  - Weight increased [Unknown]
  - White blood cell count increased [Unknown]

NARRATIVE: CASE EVENT DATE: 20240116
